FAERS Safety Report 9182544 (Version 1)
Quarter: 2013Q1

REPORT INFORMATION
  Report Type: Spontaneous
  Country: US (occurrence: US)
  Receive Date: 20130322
  Receipt Date: 20130322
  Transmission Date: 20140127
  Serious: No
  Sender: FDA-Public Use
  Company Number: US-BRISTOL-MYERS SQUIBB COMPANY-16814345

PATIENT
  Age: 80 Year
  Sex: Female
  Weight: 68.03 kg

DRUGS (5)
  1. ERBITUX [Suspect]
     Indication: RECTAL CANCER
     Dosage: THERAPY DATES:26JUN12,3JUL12,10JUL12,17JUL12.
     Route: 042
     Dates: start: 20120626
  2. IRINOTECAN [Suspect]
     Indication: RECTAL CANCER
  3. LISINOPRIL [Concomitant]
     Indication: HYPERTENSION
     Route: 048
  4. HYDROCHLOROTHIAZIDE [Concomitant]
     Indication: HYPERTENSION
     Route: 048
  5. AMLODIPINE [Concomitant]
     Indication: HYPERTENSION
     Route: 048

REACTIONS (3)
  - Diarrhoea [Recovered/Resolved]
  - Rash pruritic [Unknown]
  - Furuncle [Not Recovered/Not Resolved]
